FAERS Safety Report 17030868 (Version 2)
Quarter: 2020Q1

REPORT INFORMATION
  Report Type: Report from Study
  Country: SK (occurrence: SK)
  Receive Date: 20191114
  Receipt Date: 20200328
  Transmission Date: 20200409
  Serious: Yes (Hospitalization, Other)
  Sender: FDA-Public Use
  Company Number: PHHY2017SK152087

PATIENT
  Age: 38 Year
  Sex: Male

DRUGS (2)
  1. GILENYA [Suspect]
     Active Substance: FINGOLIMOD HYDROCHLORIDE
     Indication: MULTIPLE SCLEROSIS
     Dosage: UNK, QD
     Route: 048
     Dates: start: 20131119, end: 20141014
  2. BETAMETHASONI DIPROPIONAS [Concomitant]
     Indication: MULTIPLE SCLEROSIS RELAPSE
     Dosage: UNK
     Route: 065
     Dates: start: 20171107, end: 20171128

REACTIONS (8)
  - Blood cholesterol increased [Unknown]
  - Blood alkaline phosphatase decreased [Unknown]
  - Hypokinesia [Unknown]
  - High density lipoprotein decreased [Unknown]
  - Pain in extremity [Recovering/Resolving]
  - Radiculopathy [Recovered/Resolved]
  - Alanine aminotransferase increased [Unknown]
  - Back pain [Unknown]

NARRATIVE: CASE EVENT DATE: 20131217
